FAERS Safety Report 11999522 (Version 2)
Quarter: 2016Q1

REPORT INFORMATION
  Report Type: Spontaneous
  Country: DE (occurrence: DE)
  Receive Date: 20160204
  Receipt Date: 20160208
  Transmission Date: 20160526
  Serious: Yes (Hospitalization)
  Sender: FDA-Public Use
  Company Number: DE-DRREDDYS-GER/GER/16/0065553

PATIENT
  Age: 16 Year
  Sex: Female
  Weight: 53 kg

DRUGS (3)
  1. MAXIM [Interacting]
     Active Substance: DIENOGEST\ETHINYL ESTRADIOL
     Indication: ORAL CONTRACEPTION
     Route: 048
  2. INSULIN [Interacting]
     Active Substance: INSULIN NOS
     Indication: TYPE 1 DIABETES MELLITUS
     Route: 058
     Dates: start: 2007
  3. LAMOTRIGINE. [Suspect]
     Active Substance: LAMOTRIGINE
     Indication: IDIOPATHIC GENERALISED EPILEPSY
     Route: 048
     Dates: start: 2001

REACTIONS (7)
  - Anticonvulsant drug level decreased [Unknown]
  - Seizure [Unknown]
  - Eye swelling [Unknown]
  - Drug interaction [Unknown]
  - Fall [Unknown]
  - Eyelid haematoma [Unknown]
  - Eye injury [Unknown]

NARRATIVE: CASE EVENT DATE: 20151020
